FAERS Safety Report 7453373-X (Version None)
Quarter: 2011Q2

REPORT INFORMATION
  Report Type: 
  Country: None (occurrence: None)
  Receive Date: 20110502
  Receipt Date: 20110422
  Transmission Date: 20111010
  Serious: Yes (Hospitalization, Other)
  Sender: FDA-Public Use
  Company Number: CHPA2011US05898

PATIENT
  Age: 45 Year
  Sex: Female
  Weight: 47.166 kg

DRUGS (1)
  1. LAMISIL AT ATHLETE'S FOOT CREAM [Suspect]
     Indication: NIGHT SWEATS
     Dosage: PRN
     Route: 061

REACTIONS (12)
  - VICTIM OF SEXUAL ABUSE [None]
  - CEREBRAL HAEMORRHAGE [None]
  - NIGHT SWEATS [None]
  - JOINT SPRAIN [None]
  - ACQUIRED IMMUNODEFICIENCY SYNDROME [None]
  - PREMATURE MENOPAUSE [None]
  - HERPES ZOSTER [None]
  - LOSS OF CONSCIOUSNESS [None]
  - PRURITUS [None]
  - VICTIM OF ABUSE [None]
  - OSTEOPOROSIS [None]
  - DRUG INEFFECTIVE FOR UNAPPROVED INDICATION [None]
